FAERS Safety Report 7494272-7 (Version None)
Quarter: 2011Q2

REPORT INFORMATION
  Report Type: 
  Country: None (occurrence: None)
  Receive Date: 20110520
  Receipt Date: 20110518
  Transmission Date: 20111010
  Serious: Yes (Hospitalization, Other)
  Sender: FDA-Public Use
  Company Number: US-B.I. PHARMACEUTICALS,INC./RIDGEFIELD-2011-BP-13446BP

PATIENT
  Sex: Female

DRUGS (2)
  1. AMIODARONE HCL [Concomitant]
     Indication: ATRIAL FIBRILLATION
  2. PRADAXA [Suspect]
     Indication: ATRIAL FIBRILLATION
     Dosage: 300 MG
     Route: 048
     Dates: start: 20110201

REACTIONS (5)
  - FLATULENCE [None]
  - BLADDER NEOPLASM SURGERY [None]
  - BLADDER CANCER [None]
  - HAEMATURIA [None]
  - HEART RATE DECREASED [None]
